FAERS Safety Report 7579184-2 (Version None)
Quarter: 2011Q2

REPORT INFORMATION
  Report Type: 
  Country: None (occurrence: None)
  Receive Date: 20110628
  Receipt Date: 20110623
  Transmission Date: 20111010
  Serious: Yes (Hospitalization)
  Sender: FDA-Public Use
  Company Number: FR-ABBOTT-11P-056-0727926-00

PATIENT
  Sex: Male

DRUGS (3)
  1. HUMIRA [Suspect]
     Indication: ANKYLOSING SPONDYLITIS
     Route: 058
     Dates: start: 20100916, end: 20101201
  2. HUMIRA [Suspect]
     Indication: COLITIS ULCERATIVE
  3. AMITRIPTYLINE HCL [Concomitant]
     Indication: PRODUCT USED FOR UNKNOWN INDICATION
     Dosage: 10 DROPS DAILY
     Route: 048

REACTIONS (6)
  - FATIGUE [None]
  - PYREXIA [None]
  - HEPATITIS [None]
  - MONONUCLEOSIS SYNDROME [None]
  - CYTOMEGALOVIRUS INFECTION [None]
  - LYMPHOCYTOSIS [None]
